FAERS Safety Report 8438710-1 (Version None)
Quarter: 2012Q2

REPORT INFORMATION
  Report Type: 
  Country: None (occurrence: None)
  Receive Date: 20120611
  Receipt Date: 20120611
  Transmission Date: 20120825
  Serious: Yes (Other)
  Sender: FDA-Public Use
  Company Number: None

PATIENT
  Sex: Male
  Weight: 76 kg

DRUGS (2)
  1. FLUOROURACIL [Suspect]
     Indication: PROSTATE CANCER METASTATIC
     Dates: start: 20120207, end: 20120522
  2. PRALATREXATE 148MG/M2 ALLOS [Suspect]
     Indication: PROSTATE CANCER METASTATIC
     Dates: start: 20120206, end: 20120521

REACTIONS (6)
  - METASTASES TO BONE [None]
  - NEOPLASM PROGRESSION [None]
  - PULMONARY EMBOLISM [None]
  - PROSTATIC SPECIFIC ANTIGEN INCREASED [None]
  - FEELING ABNORMAL [None]
  - DEEP VEIN THROMBOSIS [None]
